FAERS Safety Report 19133121 (Version 1)
Quarter: 2021Q2

REPORT INFORMATION
  Report Type: Spontaneous
  Country: CN (occurrence: CN)
  Receive Date: 20210413
  Receipt Date: 20210413
  Transmission Date: 20210717
  Serious: Yes (Other)
  Sender: FDA-Public Use
  Company Number: CN-BAXTER-2021BAX006907

PATIENT
  Age: 68 Year
  Sex: Female

DRUGS (8)
  1. ENDOXAN [Suspect]
     Active Substance: CYCLOPHOSPHAMIDE
     Indication: BREAST CANCER
     Dosage: POSTOPERATIVE ADJUVANT CHEMOTHERAPY; ENDOXAN 1 G + NS 500 ML; DAY 1
     Route: 065
     Dates: start: 20210111, end: 20210111
  2. 0.9% SODIUM CHLORIDE INJECTION [Suspect]
     Active Substance: SODIUM CHLORIDE
     Indication: MEDICATION DILUTION
     Dosage: POSTOPERATIVE ADJUVANT CHEMOTHERAPY; ENDOXAN 1 G + NS 500 ML; DAY 1
     Route: 065
     Dates: start: 20210111, end: 20210111
  3. AISU [Suspect]
     Active Substance: DOCETAXEL
     Indication: BREAST CANCER
     Dosage: POSTOPERATIVE ADJUVANT CHEMOTHERAPY; AISU 120 MG + NS 200 ML; DAY 1
     Route: 065
     Dates: start: 20210111, end: 20210111
  4. ENDOXAN [Suspect]
     Active Substance: CYCLOPHOSPHAMIDE
     Dosage: DOSE RE?INTRODUCED, ENDOXAN + NS
     Route: 065
  5. 0.9% SODIUM CHLORIDE INJECTION [Suspect]
     Active Substance: SODIUM CHLORIDE
     Dosage: POSTOPERATIVE ADJUVANT CHEMOTHERAPY; AISU 120 MG + NS 200 ML; DAY 1
     Route: 065
     Dates: start: 20210111, end: 20210111
  6. 0.9% SODIUM CHLORIDE INJECTION [Suspect]
     Active Substance: SODIUM CHLORIDE
     Dosage: DOSE RE?INTRODUCED, ENDOXAN + NS
     Route: 065
  7. AISU [Suspect]
     Active Substance: DOCETAXEL
     Dosage: DOSE RE?INTRODUCED; AISU + NS
     Route: 065
  8. 0.9% SODIUM CHLORIDE INJECTION [Suspect]
     Active Substance: SODIUM CHLORIDE
     Dosage: DOSE RE?INTRODUCED; AISU + NS
     Route: 065

REACTIONS (1)
  - Myelosuppression [Recovered/Resolved]

NARRATIVE: CASE EVENT DATE: 20210118
